FAERS Safety Report 11599031 (Version 3)
Quarter: 2016Q2

REPORT INFORMATION
  Report Type: Spontaneous
  Country: US (occurrence: US)
  Receive Date: 20151006
  Receipt Date: 20160512
  Transmission Date: 20160815
  Serious: Yes (Other)
  Sender: FDA-Public Use
  Company Number: US-PFIZER INC-2015329409

PATIENT
  Age: 58 Year
  Sex: Male
  Weight: 82 kg

DRUGS (7)
  1. LEVITRA [Suspect]
     Active Substance: VARDENAFIL HYDROCHLORIDE TRIHYDRATE
     Indication: ERECTILE DYSFUNCTION
     Dosage: UNK
     Dates: start: 2012, end: 2012
  2. CIALIS [Suspect]
     Active Substance: TADALAFIL
     Indication: ERECTILE DYSFUNCTION
     Dosage: UNK
     Dates: start: 2012, end: 2012
  3. VIAGRA [Suspect]
     Active Substance: SILDENAFIL CITRATE
     Indication: ERECTILE DYSFUNCTION
     Dosage: FULL STRENGTH (BIG BLUE PILL) 100 MG AS NEEDED
     Dates: start: 201001, end: 201208
  4. VIAGRA [Interacting]
     Active Substance: SILDENAFIL CITRATE
     Dosage: UNK
     Dates: start: 201509
  5. ARSENIC [Interacting]
     Active Substance: ARSENIC
  6. ALUMINIUM [Interacting]
     Active Substance: ALUMINUM
  7. PLATINUM [Interacting]
     Active Substance: PLATINUM

REACTIONS (7)
  - Loss of libido [Unknown]
  - Chest pain [Recovered/Resolved]
  - Metal poisoning [Recovering/Resolving]
  - Erectile dysfunction [Unknown]
  - Drug interaction [Unknown]
  - Feeling abnormal [Unknown]
  - Condition aggravated [Unknown]

NARRATIVE: CASE EVENT DATE: 201111
